FAERS Safety Report 9330822 (Version 1)
Quarter: 2013Q2

REPORT INFORMATION
  Report Type: Spontaneous
  Country: US (occurrence: None)
  Receive Date: 20130604
  Receipt Date: 20130604
  Transmission Date: 20140414
  Serious: Yes (Other)
  Sender: FDA-Public Use
  Company Number: None

PATIENT
  Age: 51 Year
  Sex: Female

DRUGS (3)
  1. AZITHROMYCIN [Suspect]
     Indication: MYCOBACTERIUM AVIUM COMPLEX INFECTION
     Route: 048
  2. AZITHROMYCIN [Suspect]
     Indication: BACTERIAL INFECTION
     Route: 048
  3. AZITHROMYCIN [Suspect]
     Indication: LUNG INFECTION
     Route: 048

REACTIONS (1)
  - Alopecia [None]
